FAERS Safety Report 10718212 (Version 1)
Quarter: 2015Q1

REPORT INFORMATION
  Report Type: Report from Study
  Country: UG (occurrence: UG)
  Receive Date: 20150118
  Receipt Date: 20150118
  Transmission Date: 20150721
  Serious: Yes (Death)
  Sender: FDA-Public Use
  Company Number: UG-BRISTOL-MYERS SQUIBB COMPANY-BMS-2014-005107

PATIENT
  Sex: Female

DRUGS (14)
  1. ABACAVIR [Suspect]
     Active Substance: ABACAVIR
     Indication: HIV INFECTION
     Dosage: UNK
     Route: 065
     Dates: start: 20141127, end: 20141202
  2. LAMIVUDINE. [Suspect]
     Active Substance: LAMIVUDINE
     Indication: HIV INFECTION
     Dosage: UNK
     Route: 065
     Dates: start: 20141127, end: 20141202
  3. COTRIMOXAZOLE [Suspect]
     Active Substance: SULFAMETHOXAZOLE\TRIMETHOPRIM
     Indication: HIV INFECTION
     Dosage: UNK
     Route: 065
     Dates: start: 20141030, end: 20141202
  4. EFAVIRENZ [Suspect]
     Active Substance: EFAVIRENZ
     Indication: HIV INFECTION
     Dosage: UNK
     Route: 065
     Dates: start: 20141127, end: 20141202
  5. VITAMIN B [Suspect]
     Active Substance: VITAMIN B
     Indication: HIV INFECTION
     Dosage: UNK
     Route: 065
     Dates: start: 20141127, end: 20141202
  6. LOPERAMIDE [Suspect]
     Active Substance: LOPERAMIDE
     Indication: PRODUCT USED FOR UNKNOWN INDICATION
     Dosage: UNK
     Route: 065
     Dates: start: 20141126, end: 20141202
  7. ETHAMBUTOL [Suspect]
     Active Substance: ETHAMBUTOL HYDROCHLORIDE
     Indication: HIV INFECTION
     Dosage: UNK
     Route: 065
     Dates: start: 20141128, end: 20141202
  8. RALTEGRAVIR [Suspect]
     Active Substance: RALTEGRAVIR
     Indication: HIV INFECTION
     Dosage: UNK
     Route: 065
     Dates: start: 20141127, end: 20141202
  9. ISONIAZID. [Suspect]
     Active Substance: ISONIAZID
     Indication: HIV INFECTION
     Dosage: UNK
     Route: 065
     Dates: start: 20141128, end: 20141202
  10. PYRAZINAMIDE. [Suspect]
     Active Substance: PYRAZINAMIDE
     Indication: HIV INFECTION
     Dosage: UNK
     Route: 065
     Dates: start: 20141128, end: 20141202
  11. RIFAMPICIN [Suspect]
     Active Substance: RIFAMPIN
     Indication: HIV INFECTION
     Dosage: UNK
     Route: 065
     Dates: start: 20141128, end: 20141202
  12. METRONIDAZOLE. [Suspect]
     Active Substance: METRONIDAZOLE
     Indication: HIV INFECTION
     Dosage: UNK
     Route: 065
     Dates: start: 20141127, end: 20141202
  13. CEFTRIAXONE. [Suspect]
     Active Substance: CEFTRIAXONE
     Indication: HIV INFECTION
     Route: 065
  14. DICLOFENAC [Suspect]
     Active Substance: DICLOFENAC
     Indication: PRODUCT USED FOR UNKNOWN INDICATION
     Dosage: UNK
     Route: 065
     Dates: start: 20141126, end: 20141202

REACTIONS (2)
  - Sputum abnormal [Fatal]
  - HIV associated nephropathy [Fatal]
